FAERS Safety Report 18494460 (Version 1)
Quarter: 2020Q4

REPORT INFORMATION
  Report Type: Spontaneous
  Country: JP (occurrence: JP)
  Receive Date: 20201112
  Receipt Date: 20201112
  Transmission Date: 20210114
  Serious: Yes (Other)
  Sender: FDA-Public Use
  Company Number: NVSJ2020JP011442

PATIENT
  Age: 94 Year
  Sex: Female

DRUGS (1)
  1. RIFAMPICIN CAPSULES [Suspect]
     Active Substance: RIFAMPIN
     Indication: ATYPICAL MYCOBACTERIAL INFECTION
     Dosage: UNK
     Route: 048
     Dates: end: 202010

REACTIONS (2)
  - Haematochezia [Unknown]
  - Faeces discoloured [Not Recovered/Not Resolved]
